FAERS Safety Report 14582435 (Version 1)
Quarter: 2018Q1

REPORT INFORMATION
  Report Type: Spontaneous
  Country: DE (occurrence: DE)
  Receive Date: 20180228
  Receipt Date: 20180228
  Transmission Date: 20180509
  Serious: Yes (Other)
  Sender: FDA-Public Use
  Company Number: DE-SA-2018SA045671

PATIENT
  Sex: Female

DRUGS (1)
  1. OXALIPLATIN. [Suspect]
     Active Substance: OXALIPLATIN
     Dosage: ROUTE WAS INFUSION. DOSE:5 MILLIGRAM(S)/MILLILITRE

REACTIONS (2)
  - Diplegia [Not Recovered/Not Resolved]
  - Monoplegia [Not Recovered/Not Resolved]
